FAERS Safety Report 8548877-2 (Version None)
Quarter: 2012Q3

REPORT INFORMATION
  Report Type: 
  Country: None (occurrence: None)
  Receive Date: 20120730
  Receipt Date: 20120725
  Transmission Date: 20120928
  Serious: Yes (Other)
  Sender: FDA-Public Use
  Company Number: PHHY2012IL064296

PATIENT
  Age: 20 Year
  Sex: Female

DRUGS (1)
  1. ILARIS [Suspect]
     Route: 058

REACTIONS (1)
  - TINNITUS [None]
